FAERS Safety Report 26024855 (Version 2)
Quarter: 2025Q4

REPORT INFORMATION
  Report Type: Spontaneous
  Country: US (occurrence: US)
  Receive Date: 20251111
  Receipt Date: 20251224
  Transmission Date: 20260118
  Serious: Yes (Hospitalization)
  Sender: CSL BEHRING
  Company Number: US-BEH-2025217214

PATIENT
  Age: 30 Year
  Sex: Female

DRUGS (5)
  1. ANDEMBRY [Suspect]
     Active Substance: GARADACIMAB-GXII
     Indication: Hereditary angioedema
     Dosage: 2.4 ML, QMT
     Route: 058
  2. ANDEMBRY [Suspect]
     Active Substance: GARADACIMAB-GXII
     Indication: Prophylaxis
     Dosage: 400 MG
     Route: 058
     Dates: start: 20250815, end: 20250815
  3. ANDEMBRY [Suspect]
     Active Substance: GARADACIMAB-GXII
     Dosage: 200 MG, QMT
     Route: 058
  4. ANDEMBRY [Suspect]
     Active Substance: GARADACIMAB-GXII
     Dosage: 200 MG, AS ORDERED
     Route: 058
  5. ANDEMBRY [Suspect]
     Active Substance: GARADACIMAB-GXII
     Dosage: UNK, QMT
     Route: 058

REACTIONS (7)
  - Hereditary angioedema [Unknown]
  - Dyspnoea [Unknown]
  - Aphonia [Unknown]
  - General physical health deterioration [Unknown]
  - Device malfunction [Unknown]
  - Therapy interrupted [Unknown]
  - Incorrect dose administered [Recovered/Resolved]

NARRATIVE: CASE EVENT DATE: 20250101
